FAERS Safety Report 8827622 (Version 2)
Quarter: 2012Q4

REPORT INFORMATION
  Report Type: 
  Country: US (occurrence: US)
  Receive Date: 20121008
  Receipt Date: 20121112
  Transmission Date: 20130627
  Serious: Yes (Other)
  Sender: FDA-Public Use
  Company Number: US-SANOFI-AVENTIS-2012SA071239

PATIENT
  Age: 67 Year
  Sex: Male

DRUGS (1)
  1. LANTUS [Suspect]
     Indication: TYPE II DIABETES MELLITUS
     Dosage: Dose:50 unit(s)
     Route: 058
     Dates: start: 2004

REACTIONS (1)
  - Hallucination [Unknown]
